FAERS Safety Report 7401862-6 (Version None)
Quarter: 2011Q2

REPORT INFORMATION
  Report Type: 
  Country: None (occurrence: None)
  Receive Date: 20110408
  Receipt Date: 20110308
  Transmission Date: 20111010
  Serious: Yes (Hospitalization, Other)
  Sender: FDA-Public Use
  Company Number: US-BAYER-2010-005956

PATIENT
  Sex: Female
  Weight: 75 kg

DRUGS (14)
  1. ASCORBIC ACID [Concomitant]
     Dosage: UNK
     Dates: start: 20000101, end: 20100101
  2. SYMBICORT [Concomitant]
     Dosage: UNK
     Dates: start: 20091021
  3. LEXAPRO [Concomitant]
  4. NASONEX [Concomitant]
     Dosage: UNK
     Dates: start: 20070101
  5. IPRATROPIUM BROMIDE [Concomitant]
     Dosage: UNK
     Dates: start: 20091021
  6. SINGULAIR [Concomitant]
     Dosage: UNK
     Dates: start: 20091021
  7. ALBUTEROL [Concomitant]
     Dosage: UNK
     Dates: start: 20091021
  8. ALEVE-D SINUS + COLD [Concomitant]
     Dosage: UNK
     Dates: start: 20000101
  9. ZYRTEC [Concomitant]
  10. YAZ [Suspect]
     Indication: PREMENSTRUAL SYNDROME
     Dosage: UNK
     Dates: end: 20091001
  11. IBUPROFEN (ADVIL) [Concomitant]
     Dosage: UNK
     Dates: start: 20000101
  12. MOTRIN [Concomitant]
     Dosage: UNK
     Dates: start: 20000101
  13. DEPAKOTE [Concomitant]
  14. ADVAIR HFA [Concomitant]
     Dosage: UNK
     Dates: start: 20070101

REACTIONS (5)
  - PULMONARY EMBOLISM [None]
  - RESPIRATORY RATE INCREASED [None]
  - PAIN [None]
  - HEART RATE INCREASED [None]
  - DYSPNOEA [None]
